FAERS Safety Report 26145804 (Version 1)
Quarter: 2025Q4

REPORT INFORMATION
  Report Type: Spontaneous
  Country: US (occurrence: US)
  Receive Date: 20251211
  Receipt Date: 20251211
  Transmission Date: 20260118
  Serious: Yes (Other)
  Sender: GERON CORP
  Company Number: US-GERON-INTAKE-US-2101-2025

PATIENT

DRUGS (1)
  1. RYTELO [Suspect]
     Active Substance: IMETELSTAT SODIUM
     Indication: Product used for unknown indication
     Dosage: UNK MILLIGRAM/KILOGRAM
     Route: 042

REACTIONS (1)
  - Gastrointestinal haemorrhage [Not Recovered/Not Resolved]
